FAERS Safety Report 15888710 (Version 1)
Quarter: 2019Q1

REPORT INFORMATION
  Report Type: Spontaneous
  Country: US (occurrence: US)
  Receive Date: 20190129
  Receipt Date: 20190129
  Transmission Date: 20190417
  Serious: Yes (Other)
  Sender: FDA-Public Use
  Company Number: None

PATIENT
  Age: 67 Year
  Sex: Female
  Weight: 145 kg

DRUGS (1)
  1. DUPILUMAB [Suspect]
     Active Substance: DUPILUMAB
     Indication: DERMATITIS ATOPIC
     Dates: start: 20181204, end: 20181219

REACTIONS (4)
  - Arthralgia [None]
  - Joint swelling [None]
  - Injection site erythema [None]
  - Injection site induration [None]

NARRATIVE: CASE EVENT DATE: 20181221
